FAERS Safety Report 8337427-1 (Version None)
Quarter: 2012Q2

REPORT INFORMATION
  Report Type: 
  Country: None (occurrence: None)
  Receive Date: 20120504
  Receipt Date: 20120419
  Transmission Date: 20120825
  Serious: Yes (Death, Hospitalization)
  Sender: FDA-Public Use
  Company Number: FR-ROCHE-692244

PATIENT
  Sex: Female

DRUGS (6)
  1. AZATHIOPRINE [Concomitant]
  2. PLAQUENIL [Concomitant]
     Indication: SYSTEMIC LUPUS ERYTHEMATOSUS
     Dosage: DOSE; 200 X 2 DAILY
     Dates: start: 20090327, end: 20091120
  3. CYCLOPHOSPHAMIDE [Suspect]
     Indication: SYSTEMIC LUPUS ERYTHEMATOSUS
     Dosage: 10 CYCLE
     Route: 042
     Dates: start: 20090202, end: 20091012
  4. CYCLOPHOSPHAMIDE [Suspect]
     Route: 048
     Dates: start: 20091224, end: 20100217
  5. MABTHERA [Suspect]
     Indication: SYSTEMIC LUPUS ERYTHEMATOSUS
     Dosage: CYCLE
     Route: 042
     Dates: start: 20091120, end: 20091204
  6. CYCLOPHOSPHAMIDE [Suspect]
     Dosage: INTRAVENOUS BOLUS
     Route: 042
     Dates: start: 20091120, end: 20091204

REACTIONS (1)
  - PROGRESSIVE MULTIFOCAL LEUKOENCEPHALOPATHY [None]
